FAERS Safety Report 5518567-9 (Version None)
Quarter: 2007Q4

REPORT INFORMATION
  Report Type: 
  Country: None (occurrence: None)
  Receive Date: 20071115
  Receipt Date: 20071107
  Transmission Date: 20080405
  Serious: Yes (Other)
  Sender: FDA-Public Use
  Company Number: FR-ASTRAZENECA-2007CG01581

PATIENT
  Age: 31251 Day
  Sex: Male

DRUGS (10)
  1. CRESTOR [Suspect]
     Route: 048
     Dates: end: 20070927
  2. MEMANTINE HCL [Suspect]
     Indication: DEMENTIA ALZHEIMER'S TYPE
     Route: 048
  3. DILTIAZEM HCL [Suspect]
     Route: 048
     Dates: end: 20070927
  4. IKOREL [Suspect]
     Route: 048
     Dates: end: 20070927
  5. FLIXOTIDE DISKUS [Suspect]
     Route: 055
     Dates: end: 20070927
  6. NITRODERM [Concomitant]
     Route: 062
     Dates: end: 20070927
  7. NITRODERM [Concomitant]
     Route: 062
     Dates: start: 20070930
  8. ASPIRIN [Concomitant]
  9. PANTOPRAZOLE SODIUM [Concomitant]
  10. TAHOR [Concomitant]
     Dates: start: 20070928

REACTIONS (2)
  - ATRIOVENTRICULAR BLOCK COMPLETE [None]
  - ATRIOVENTRICULAR BLOCK SECOND DEGREE [None]
